FAERS Safety Report 4503813-0 (Version None)
Quarter: 2004Q4

REPORT INFORMATION
  Report Type: 
  Country: None (occurrence: None)
  Receive Date: 20041117
  Receipt Date: 20041109
  Transmission Date: 20050328
  Serious: Yes (Hospitalization)
  Sender: FDA-Public Use
  Company Number: FI-MERCK-0411FIN00004

PATIENT
  Sex: Female

DRUGS (1)
  1. VIOXX [Suspect]
     Indication: NECK PAIN
     Route: 065
     Dates: start: 20030101

REACTIONS (1)
  - HEART RATE DECREASED [None]
